FAERS Safety Report 10858034 (Version 1)
Quarter: 2015Q1

REPORT INFORMATION
  Report Type: Report from Study
  Country: IE (occurrence: IE)
  Receive Date: 20150223
  Receipt Date: 20150223
  Transmission Date: 20150721
  Serious: Yes (Death, Other)
  Sender: FDA-Public Use
  Company Number: IE-GLAXOSMITHKLINE INC.-IE2015GSK023254

PATIENT
  Age: 74 Year
  Sex: Male

DRUGS (20)
  1. XANAX [Concomitant]
     Active Substance: ALPRAZOLAM
  2. LOPAZE [Concomitant]
  3. TRANDATE [Concomitant]
     Active Substance: LABETALOL HYDROCHLORIDE
  4. STEMETIL [Concomitant]
     Active Substance: PROCHLORPERAZINE MALEATE
  5. TARGIN [Concomitant]
     Active Substance: NALOXONE HYDROCHLORIDE\OXYCODONE HYDROCHLORIDE
  6. OXYNORM [Concomitant]
     Active Substance: OXYCODONE HYDROCHLORIDE
  7. ALLOPURINOL. [Concomitant]
     Active Substance: ALLOPURINOL
  8. MAXOLON [Concomitant]
     Active Substance: METOCLOPRAMIDE HYDROCHLORIDE
  9. EXFORGE [Concomitant]
     Active Substance: AMLODIPINE BESYLATE\VALSARTAN
  10. CARDURA [Concomitant]
     Active Substance: DOXAZOSIN MESYLATE
  11. BURINEX [Concomitant]
     Active Substance: BUMETANIDE
  12. STILNOCT [Concomitant]
     Active Substance: ZOLPIDEM TARTRATE
  13. LONITEN [Concomitant]
     Active Substance: MINOXIDIL
  14. TRANSIDERM NITRO [Concomitant]
  15. DEXAMETHASONE. [Concomitant]
     Active Substance: DEXAMETHASONE
  16. PAZOPANIB [Suspect]
     Active Substance: PAZOPANIB
     Indication: RENAL CELL CARCINOMA
     Dosage: 600 MG, UNK
     Route: 048
     Dates: start: 20140919
  17. ZOFRAN [Concomitant]
     Active Substance: ONDANSETRON HYDROCHLORIDE
  18. DIOCTYL [Concomitant]
     Active Substance: DOCUSATE SODIUM
  19. FEXOFENADINE [Concomitant]
     Active Substance: FEXOFENADINE\FEXOFENADINE HYDROCHLORIDE
  20. LIPOSTAT [Concomitant]
     Active Substance: PRAVASTATIN SODIUM

REACTIONS (1)
  - Death [Fatal]

NARRATIVE: CASE EVENT DATE: 20150217
